FAERS Safety Report 10034022 (Version 1)
Quarter: 2014Q1

REPORT INFORMATION
  Report Type: Spontaneous
  Country: US (occurrence: None)
  Receive Date: 20140324
  Receipt Date: 20140324
  Transmission Date: 20141002
  Serious: Yes (Life-Threatening)
  Sender: FDA-Public Use
  Company Number: None

PATIENT
  Age: 43 Year
  Sex: Female
  Weight: 70.31 kg

DRUGS (1)
  1. GUAIATUSSIN AC [Suspect]
     Indication: COUGH
     Dosage: 5 ML?4 HOURS?TAKEN BY MOUTH
     Route: 048
     Dates: start: 20140321, end: 20140321

REACTIONS (5)
  - Dizziness [None]
  - Malaise [None]
  - Loss of consciousness [None]
  - Hypersomnia [None]
  - Road traffic accident [None]
